FAERS Safety Report 10178194 (Version 1)
Quarter: 2014Q2

REPORT INFORMATION
  Report Type: Spontaneous
  Country: US (occurrence: US)
  Receive Date: 20140519
  Receipt Date: 20140519
  Transmission Date: 20141212
  Serious: No
  Sender: FDA-Public Use
  Company Number: US-009507513-1405USA007160

PATIENT
  Age: 27 Year
  Sex: Male

DRUGS (5)
  1. EMEND [Suspect]
     Indication: NAUSEA
     Dosage: 150 MG, UNK
     Route: 042
     Dates: start: 20140512
  2. CISPLATIN [Concomitant]
  3. VP-16 [Concomitant]
  4. KYTRIL [Concomitant]
  5. DECADRON [Concomitant]

REACTIONS (1)
  - Drug ineffective [Unknown]
